FAERS Safety Report 6272140-6 (Version None)
Quarter: 2009Q3

REPORT INFORMATION
  Report Type: 
  Country: None (occurrence: None)
  Receive Date: 20090717
  Receipt Date: 20090707
  Transmission Date: 20100115
  Serious: Yes (Death, Hospitalization)
  Sender: FDA-Public Use
  Company Number: KR-PFIZER INC-2009238136

PATIENT
  Age: 75 Year

DRUGS (1)
  1. LYRICA [Suspect]
     Indication: POST HERPETIC NEURALGIA
     Dosage: UNIT DOSE: A HALF OF 150 M; FREQUENCY: 2X/DAY,
     Route: 048
     Dates: start: 20090622, end: 20090623

REACTIONS (2)
  - DEATH [None]
  - DIZZINESS [None]
